FAERS Safety Report 25832935 (Version 1)
Quarter: 2025Q3

REPORT INFORMATION
  Report Type: Spontaneous
  Country: US (occurrence: US)
  Receive Date: 20250922
  Receipt Date: 20250922
  Transmission Date: 20251020
  Serious: No
  Sender: BRAINTREE
  Company Number: US-BRAINTREE LABORATORIES, INC.-2025BTE00122

PATIENT
  Age: 75 Year
  Sex: Female
  Weight: 50.794 kg

DRUGS (9)
  1. SUPREP BOWEL PREP [Suspect]
     Active Substance: MAGNESIUM SULFATE\POTASSIUM SULFATE\SODIUM SULFATE
     Indication: Colonoscopy
     Route: 048
     Dates: start: 20250216, end: 20250216
  2. PROGRAF [Concomitant]
     Active Substance: TACROLIMUS
  3. MYFORTIC [Concomitant]
     Active Substance: MYCOPHENOLATE SODIUM
  4. ASPIRIN [Concomitant]
     Active Substance: ASPIRIN
  5. CARVEDILOL [Concomitant]
     Active Substance: CARVEDILOL
  6. SODIUM BICARBONATE [Concomitant]
     Active Substance: SODIUM BICARBONATE
  7. LASIX [Concomitant]
     Active Substance: FUROSEMIDE
  8. AMLODIPINE [Concomitant]
     Active Substance: AMLODIPINE BESYLATE
  9. CALCIUM [Concomitant]
     Active Substance: CALCIUM

REACTIONS (4)
  - Dehydration [Recovered/Resolved]
  - Heart rate increased [Recovered/Resolved]
  - Chest pain [Recovered/Resolved]
  - Vomiting [Recovered/Resolved]

NARRATIVE: CASE EVENT DATE: 20250216
